FAERS Safety Report 13774756 (Version 1)
Quarter: 2017Q3

REPORT INFORMATION
  Report Type: Report from Study
  Country: AT (occurrence: AT)
  Receive Date: 20170720
  Receipt Date: 20170720
  Transmission Date: 20171127
  Serious: Yes (Hospitalization)
  Sender: FDA-Public Use
  Company Number: AT-TEVA-787987ROM

PATIENT
  Age: 46 Year
  Sex: Male

DRUGS (18)
  1. CEFTAZIDIME. [Suspect]
     Active Substance: CEFTAZIDIME
     Indication: SYSTEMIC INFLAMMATORY RESPONSE SYNDROME
     Route: 065
  2. ACICLOVIR [Concomitant]
     Active Substance: ACYCLOVIR
     Route: 065
  3. GANCICLOVIR. [Concomitant]
     Active Substance: GANCICLOVIR
     Route: 065
  4. FOSCARNET [Concomitant]
     Active Substance: FOSCARNET
     Route: 065
  5. AMOXICILLIN W/CLAVULANIC ACID [Suspect]
     Active Substance: AMOXICILLIN\CLAVULANIC ACID
     Indication: SYSTEMIC INFLAMMATORY RESPONSE SYNDROME
     Route: 065
  6. LEVOFLOXACIN. [Suspect]
     Active Substance: LEVOFLOXACIN
     Indication: SYSTEMIC INFLAMMATORY RESPONSE SYNDROME
     Route: 065
  7. MEROPENEM. [Suspect]
     Active Substance: MEROPENEM
     Indication: SYSTEMIC INFLAMMATORY RESPONSE SYNDROME
     Route: 065
  8. RIFAMPICIN [Suspect]
     Active Substance: RIFAMPIN
     Indication: SYSTEMIC INFLAMMATORY RESPONSE SYNDROME
     Route: 065
  9. PREDNISOLONE. [Suspect]
     Active Substance: PREDNISOLONE
     Indication: ACUTE RESPIRATORY DISTRESS SYNDROME
     Dosage: 50MG/DAY
     Route: 065
  10. AMPHOTERICIN B. [Concomitant]
     Active Substance: AMPHOTERICIN B
     Route: 065
  11. CIPROFLOXACIN. [Suspect]
     Active Substance: CIPROFLOXACIN
     Indication: SYSTEMIC INFLAMMATORY RESPONSE SYNDROME
     Route: 065
  12. METHOTREXATE. [Suspect]
     Active Substance: METHOTREXATE
     Indication: RHEUMATOID ARTHRITIS
     Route: 065
  13. PIPERACILLIN AND TAZOBACTAM [Suspect]
     Active Substance: PIPERACILLIN SODIUM\TAZOBACTAM SODIUM
     Indication: SYSTEMIC INFLAMMATORY RESPONSE SYNDROME
     Route: 065
  14. CASPOFUNGIN [Concomitant]
     Active Substance: CASPOFUNGIN
     Route: 065
  15. LINEZOLID. [Suspect]
     Active Substance: LINEZOLID
     Indication: SYSTEMIC INFLAMMATORY RESPONSE SYNDROME
     Route: 065
  16. ANIDULAFUNGIN [Concomitant]
     Active Substance: ANIDULAFUNGIN
     Route: 065
  17. CEFEPIME [Suspect]
     Active Substance: CEFEPIME HYDROCHLORIDE
     Indication: SYSTEMIC INFLAMMATORY RESPONSE SYNDROME
     Route: 065
  18. AMIKACIN [Suspect]
     Active Substance: AMIKACIN
     Route: 065

REACTIONS (2)
  - Enterocolitis [Unknown]
  - Pneumonitis [Unknown]
